FAERS Safety Report 15387287 (Version 2)
Quarter: 2018Q4

REPORT INFORMATION
  Report Type: Spontaneous
  Country: PL (occurrence: PL)
  Receive Date: 20180914
  Receipt Date: 20181009
  Transmission Date: 20190204
  Serious: Yes (Hospitalization, Other)
  Sender: FDA-Public Use
  Company Number: PL-SAKK-2018SA253951AA

PATIENT
  Age: 26 Year
  Sex: Male

DRUGS (2)
  1. PRIMAQUINE [Suspect]
     Active Substance: PRIMAQUINE PHOSPHATE
     Indication: MALARIA
     Dosage: 15 MG, QD; ON DAY 7
  2. CHLOROQUINE. [Suspect]
     Active Substance: CHLOROQUINE
     Indication: MALARIA
     Dosage: 1 AMPOULE
     Route: 030

REACTIONS (11)
  - Methaemoglobinaemia [Recovered/Resolved]
  - Dyspnoea [Recovered/Resolved]
  - Bone marrow failure [Recovered/Resolved]
  - Asthenia [Recovered/Resolved]
  - Dizziness [Recovered/Resolved]
  - Cyanosis [Recovered/Resolved]
  - Skin discolouration [Recovered/Resolved]
  - Pyrexia [Recovered/Resolved]
  - Agranulocytosis [Recovered/Resolved]
  - Mucosal erosion [Recovered/Resolved]
  - Tonsillar erythema [Recovered/Resolved]
